FAERS Safety Report 16266603 (Version 1)
Quarter: 2019Q2

REPORT INFORMATION
  Report Type: Spontaneous
  Country: US (occurrence: US)
  Receive Date: 20190502
  Receipt Date: 20190502
  Transmission Date: 20190711
  Serious: Yes (Hospitalization)
  Sender: FDA-Public Use
  Company Number: US-ELI_LILLY_AND_COMPANY-US201904011712

PATIENT
  Age: 60 Year
  Sex: Female

DRUGS (1)
  1. TALTZ [Suspect]
     Active Substance: IXEKIZUMAB
     Indication: PSORIASIS
     Dosage: 160 MG, SINGLE
     Route: 065
     Dates: start: 20190117

REACTIONS (8)
  - Injection site urticaria [Unknown]
  - Gait disturbance [Unknown]
  - Loss of consciousness [Unknown]
  - Vomiting [Unknown]
  - Dizziness [Unknown]
  - Swelling face [Unknown]
  - Dysphagia [Unknown]
  - Fall [Unknown]
